FAERS Safety Report 22080480 (Version 2)
Quarter: 2023Q1

REPORT INFORMATION
  Report Type: Report from Study
  Country: US (occurrence: None)
  Receive Date: 20230309
  Receipt Date: 20230314
  Transmission Date: 20230417
  Serious: Yes (Hospitalization)
  Sender: FDA-Public Use
  Company Number: US-Eisai Medical Research-EC-2023-135643

PATIENT
  Age: 65 Year
  Sex: Female
  Weight: 49.7 kg

DRUGS (14)
  1. LENVATINIB [Suspect]
     Active Substance: LENVATINIB
     Indication: Squamous cell carcinoma of head and neck
     Dosage: STARTING DOSE AT 24 MG, FLUCTUATED DOSAGE
     Route: 048
     Dates: start: 20220921, end: 20230131
  2. CLONAZEPAM [Concomitant]
     Active Substance: CLONAZEPAM
     Dates: start: 20210708
  3. PROMETHAZINE [Concomitant]
     Active Substance: PROMETHAZINE HYDROCHLORIDE
     Dates: start: 20210914
  4. OXYCODONE [Concomitant]
     Active Substance: OXYCODONE
     Dates: start: 20211108
  5. OXYCONTIN [Concomitant]
     Active Substance: OXYCODONE HYDROCHLORIDE
     Dates: start: 20220725
  6. ALUMINIUM HYDROXIDE;DIPHENHYDRAMINE HYDROCHLORIDE;LIDOCAINE;MAGNESIUM [Concomitant]
     Dosage: RINSE
     Dates: start: 20220919
  7. LEVOTHYROXINE SODIUM [Concomitant]
     Active Substance: LEVOTHYROXINE SODIUM
     Dates: start: 20221013
  8. POTASSIUM CHLORIDE [Concomitant]
     Active Substance: POTASSIUM CHLORIDE
     Dates: start: 20220919
  9. CIPROFLOXACIN AND DEXAMETHASONE [Concomitant]
     Active Substance: CIPROFLOXACIN HYDROCHLORIDE\DEXAMETHASONE
     Dates: start: 20230203
  10. AMOXICILLIN\CLAVULANATE POTASSIUM [Concomitant]
     Active Substance: AMOXICILLIN\CLAVULANATE POTASSIUM
     Dates: start: 20230213
  11. MORPHINE [Concomitant]
     Active Substance: MORPHINE
     Dates: start: 20230213
  12. ROCEPHIN [Concomitant]
     Active Substance: CEFTRIAXONE SODIUM
     Dates: start: 20230303, end: 20230303
  13. SODIUM CHLORIDE [Concomitant]
     Active Substance: SODIUM CHLORIDE
     Dates: start: 20230303, end: 20230303
  14. VEKLURY [Concomitant]
     Active Substance: REMDESIVIR
     Dates: start: 20230303, end: 20230303

REACTIONS (1)
  - Cholecystitis [Not Recovered/Not Resolved]

NARRATIVE: CASE EVENT DATE: 20230303
